FAERS Safety Report 10690171 (Version 1)
Quarter: 2015Q1

REPORT INFORMATION
  Report Type: Spontaneous
  Country: US (occurrence: None)
  Receive Date: 20150102
  Receipt Date: 20150102
  Transmission Date: 20150720
  Serious: Yes (Other)
  Sender: FDA-Public Use
  Company Number: None

PATIENT
  Age: 43 Year
  Sex: Female
  Weight: 65.77 kg

DRUGS (1)
  1. MONISTAT 3 [Suspect]
     Active Substance: MICONAZOLE NITRATE
     Indication: FUNGAL INFECTION
     Dosage: AT BEDTIME
     Route: 067
     Dates: start: 20141223, end: 20141226

REACTIONS (6)
  - Vulvovaginal swelling [None]
  - Vulvovaginal pruritus [None]
  - Vulvovaginal discomfort [None]
  - Vulvovaginal burning sensation [None]
  - Genital blister [None]
  - Rash [None]

NARRATIVE: CASE EVENT DATE: 20141223
